FAERS Safety Report 9276646 (Version 4)
Quarter: 2014Q2

REPORT INFORMATION
  Report Type: Spontaneous
  Country: JP (occurrence: JP)
  Receive Date: 20130507
  Receipt Date: 20140516
  Transmission Date: 20141212
  Serious: Yes (Hospitalization, Other)
  Sender: FDA-Public Use
  Company Number: JP-ALEXION-A201300928

PATIENT
  Sex: 0

DRUGS (7)
  1. SOLIRIS 300MG [Suspect]
     Indication: PAROXYSMAL NOCTURNAL HAEMOGLOBINURIA
     Dosage: 600 MG, QW
     Route: 042
     Dates: start: 20130110
  2. SOLIRIS 300MG [Suspect]
     Dosage: 900 MG, Q2W
     Route: 042
     Dates: end: 20140122
  3. PREDONINE [Concomitant]
     Indication: PAROXYSMAL NOCTURNAL HAEMOGLOBINURIA
     Dosage: 10 MG, QD
     Dates: start: 2002
  4. PREDONINE [Concomitant]
     Dosage: 5 MG, QD
     Route: 048
     Dates: start: 20130807
  5. PREDONINE [Concomitant]
     Dosage: 25MG QD
     Route: 048
     Dates: start: 20140119
  6. PREDONINE [Concomitant]
     Dosage: 10MG QD
     Route: 048
     Dates: start: 20140305
  7. RIVAROXABAN [Concomitant]
     Indication: ATRIAL FIBRILLATION
     Dosage: UNK
     Route: 065

REACTIONS (6)
  - Refractory cytopenia with multilineage dysplasia [Unknown]
  - Interstitial lung disease [Not Recovered/Not Resolved]
  - Pleural effusion [Recovered/Resolved]
  - Pneumonia [Recovered/Resolved]
  - Myelodysplastic syndrome [Recovered/Resolved]
  - Drug ineffective [Not Recovered/Not Resolved]
